FAERS Safety Report 10209976 (Version 1)
Quarter: 2014Q2

REPORT INFORMATION
  Report Type: Spontaneous
  Country: BE (occurrence: BE)
  Receive Date: 20140602
  Receipt Date: 20140602
  Transmission Date: 20141212
  Serious: Yes (Hospitalization)
  Sender: FDA-Public Use
  Company Number: BE-MERCK-1405BEL013254

PATIENT
  Age: 5 Year
  Sex: Male

DRUGS (1)
  1. REMERGON [Suspect]
     Dosage: 15 MG, ONCE (4 DF, TOTAL DAILY DOSE 60 MG)
     Route: 048
     Dates: start: 20131009, end: 20131009

REACTIONS (1)
  - Accidental poisoning [Recovered/Resolved]
